FAERS Safety Report 13756590 (Version 1)
Quarter: 2017Q3

REPORT INFORMATION
  Report Type: Spontaneous
  Country: US (occurrence: US)
  Receive Date: 20170714
  Receipt Date: 20170714
  Transmission Date: 20171127
  Serious: Yes (Hospitalization, Other)
  Sender: FDA-Public Use
  Company Number: US-PFIZER INC-2017303485

PATIENT
  Sex: Female

DRUGS (2)
  1. METHOTREXATE SODIUM. [Suspect]
     Active Substance: METHOTREXATE SODIUM
     Dosage: 0.7 ML, WEEKLY  [0.7 CC/ WEEK]
  2. ACTEMRA [Concomitant]
     Active Substance: TOCILIZUMAB

REACTIONS (5)
  - Vomiting [Unknown]
  - Inflammatory bowel disease [Unknown]
  - Joint swelling [Unknown]
  - Rectal haemorrhage [Unknown]
  - Arthralgia [Unknown]
